FAERS Safety Report 6232960-0 (Version None)
Quarter: 2009Q2

REPORT INFORMATION
  Report Type: 
  Country: None (occurrence: None)
  Receive Date: 20090615
  Receipt Date: 20090615
  Transmission Date: 20091009
  Serious: No
  Sender: FDA-Public Use
  Company Number: None

PATIENT
  Sex: Male
  Weight: 104.3273 kg

DRUGS (1)
  1. LIPITOR [Suspect]
     Indication: BLOOD CHOLESTEROL
     Dosage: 40 MG. ^1^ - TABLET DAY
     Dates: start: 20081001

REACTIONS (2)
  - PHOTOSENSITIVITY REACTION [None]
  - RASH PRURITIC [None]
